FAERS Safety Report 8485391-7 (Version None)
Quarter: 2012Q3

REPORT INFORMATION
  Report Type: 
  Country: None (occurrence: None)
  Receive Date: 20120703
  Receipt Date: 20120627
  Transmission Date: 20120928
  Serious: Yes (Other)
  Sender: FDA-Public Use
  Company Number: PHFR2012GB003753

PATIENT
  Sex: Male

DRUGS (4)
  1. ATORVASTATIN [Concomitant]
     Dosage: 40 MG, DAILY
  2. CLOZARIL [Suspect]
     Indication: PSYCHOTIC DISORDER
     Dosage: 250 MG, DAILY
     Route: 048
     Dates: start: 20061201
  3. HYOSCINE HBR HYT [Concomitant]
     Indication: SALIVARY HYPERSECRETION
     Dosage: 300 MG, DAILY
     Route: 048
  4. OMEPRAZOLE [Concomitant]
     Dosage: 40 MG, DAILY

REACTIONS (1)
  - HUNTINGTON'S DISEASE [None]
